FAERS Safety Report 26062881 (Version 2)
Quarter: 2025Q4

REPORT INFORMATION
  Report Type: Report from Study
  Country: US (occurrence: US)
  Receive Date: 20251119
  Receipt Date: 20251210
  Transmission Date: 20260118
  Serious: Yes (Hospitalization)
  Sender: RECORDATI
  Company Number: US-ORPHANEU-2025005982

PATIENT
  Age: 44 Year
  Sex: Female
  Weight: 153.29 kg

DRUGS (16)
  1. ISTURISA [Suspect]
     Active Substance: OSILODROSTAT PHOSPHATE
     Indication: Cushing^s syndrome
     Dosage: 4 MG, BID
     Route: 048
     Dates: start: 20250521, end: 2025
  2. ISTURISA [Suspect]
     Active Substance: OSILODROSTAT PHOSPHATE
     Indication: Pituitary tumour benign
     Dosage: 8 MG, BID (3 MG, BID (1 MG TABLET) AND 5 MG, BID (5 MG TABLET))
     Route: 048
     Dates: start: 202509
  3. ISTURISA [Suspect]
     Active Substance: OSILODROSTAT PHOSPHATE
     Dosage: 8 MG, BID (3 MG, BID (1 MG TABLET) AND 5 MG, BID (5 MG TABLET))
     Route: 048
     Dates: start: 202509
  4. METFORMIN HYDROCHLORIDE [Concomitant]
     Active Substance: METFORMIN HYDROCHLORIDE
     Indication: Product used for unknown indication
     Dosage: 1000 MG, DAILY (TABLET 500 MG)
     Route: 048
     Dates: start: 20250516
  5. LEVOTHYROXINE SODIUM [Concomitant]
     Active Substance: LEVOTHYROXINE SODIUM
     Indication: Product used for unknown indication
     Dosage: 175 MICROGRAM, QD (TABLET)
     Route: 048
     Dates: start: 20250516
  6. SPIRONOLACTONE [Concomitant]
     Active Substance: SPIRONOLACTONE
     Indication: Product used for unknown indication
     Dosage: 50 MG, QD (TABLET)
     Route: 048
     Dates: start: 20250516, end: 20250817
  7. SPIRONOLACTONE [Concomitant]
     Active Substance: SPIRONOLACTONE
     Dosage: 25 MG, QD (TABLET)
     Route: 048
     Dates: start: 20250818
  8. PANTOPRAZOLE SODIUM [Concomitant]
     Active Substance: PANTOPRAZOLE SODIUM
     Indication: Product used for unknown indication
     Dosage: 40 MG, DAILY (TABLET DELAYED)
     Route: 048
     Dates: start: 20250516
  9. COLESEVELAM HYDROCHLORIDE [Concomitant]
     Active Substance: COLESEVELAM HYDROCHLORIDE
     Indication: Product used for unknown indication
     Dosage: 625 MG, TID (TABLET)
     Route: 048
     Dates: start: 20250516
  10. CETIRIZINE HCL [Concomitant]
     Active Substance: CETIRIZINE HYDROCHLORIDE
     Indication: Product used for unknown indication
     Dosage: 10 MG, QD (TABLET)
     Route: 048
     Dates: start: 20250516
  11. MONTELUKAST SODIUM [Concomitant]
     Active Substance: MONTELUKAST SODIUM
     Indication: Product used for unknown indication
     Dosage: 10 MG, QD (TABLET)
     Route: 048
     Dates: start: 20250516
  12. ERGOCALCIFEROL [Concomitant]
     Active Substance: ERGOCALCIFEROL
     Indication: Product used for unknown indication
     Dosage: 1.25 MG, QW (CAPSULE)
     Route: 048
     Dates: start: 20250516
  13. TOUJEO [Concomitant]
     Active Substance: INSULIN GLARGINE
     Indication: Product used for unknown indication
     Dosage: 40 UNITS, DAILY (SOLUTION)
     Route: 058
     Dates: start: 20250516, end: 20250817
  14. TOUJEO [Concomitant]
     Active Substance: INSULIN GLARGINE
     Dosage: 50 UNITS, DAILY (SOLUTION)
     Route: 058
     Dates: start: 20250818
  15. VITAMINS [Concomitant]
     Active Substance: VITAMINS
     Indication: Product used for unknown indication
     Dosage: 1 TABLET, QD (TABLET)
     Route: 048
     Dates: start: 20250516
  16. Cvs melatonin [Concomitant]
     Indication: Product used for unknown indication
     Dosage: 10 MG, HS (10 MG TABLET)
     Route: 048
     Dates: start: 20250516

REACTIONS (5)
  - Pancreatitis [Recovered/Resolved]
  - Pancreatitis [Recovering/Resolving]
  - Pulmonary embolism [Recovering/Resolving]
  - Deep vein thrombosis [Recovering/Resolving]
  - COVID-19 [Recovering/Resolving]

NARRATIVE: CASE EVENT DATE: 20250814
